FAERS Safety Report 10272121 (Version 4)
Quarter: 2014Q3

REPORT INFORMATION
  Report Type: Spontaneous
  Country: US (occurrence: US)
  Receive Date: 20140702
  Receipt Date: 20140807
  Transmission Date: 20150326
  Serious: Yes (Hospitalization, Other)
  Sender: FDA-Public Use
  Company Number: US-B.I. PHARMACEUTICALS,INC./RIDGEFIELD-2014-BI-28889BP

PATIENT
  Age: 61 Year
  Sex: Female
  Weight: 123 kg

DRUGS (14)
  1. PROAIR HFA 108 (90 BASE) [Concomitant]
     Dosage: ROUTE: AEROSOL SOLUTION
     Route: 055
     Dates: start: 20140423
  2. OSTEO BIFLEX ADV DOUBLE ST [Concomitant]
     Route: 048
  3. PRADAXA [Suspect]
     Active Substance: DABIGATRAN ETEXILATE MESYLATE
     Indication: ATRIAL FIBRILLATION
     Dosage: 300 MG
     Route: 048
     Dates: start: 20140423, end: 20140512
  4. COQ10 [Concomitant]
     Active Substance: UBIDECARENONE
     Route: 048
     Dates: start: 20140127
  5. EPIPEN [Concomitant]
     Active Substance: EPINEPHRINE
     Dosage: ROUTE: INJECTION; STRENGTH: 0.3MG/0.3ML
     Route: 050
     Dates: start: 20140127
  6. NASONEX [Concomitant]
     Active Substance: MOMETASONE FUROATE
     Dosage: FORMULATION: NASAL SUSPENSION; STRENGTH/DAILY DOSE: 50 MCG/ACT, 2 SPRAYS IN EACH NOSTRIL
     Route: 050
     Dates: start: 20140127
  7. VITAMIN E [Concomitant]
     Active Substance: .ALPHA.-TOCOPHEROL
     Route: 048
     Dates: start: 20140127
  8. CARVEDILOL. [Concomitant]
     Active Substance: CARVEDILOL
     Route: 048
     Dates: start: 20140127
  9. MULTIVIATMINS [Concomitant]
     Dosage: 1 ANZ
     Route: 048
     Dates: start: 20140127
  10. SILVER SULFADIAZINE. [Concomitant]
     Active Substance: SILVER SULFADIAZINE
     Route: 065
     Dates: start: 20140423
  11. COREG [Concomitant]
     Active Substance: CARVEDILOL
     Indication: HYPERTENSION
     Dosage: 25 MG
     Route: 048
     Dates: start: 2004
  12. FISH OIL [Concomitant]
     Active Substance: FISH OIL
     Indication: MUSCLE SPASMS
     Dosage: 2000 MG
     Route: 048
     Dates: start: 1994
  13. CLARITIN [Concomitant]
     Active Substance: LORATADINE
     Dosage: 10 MG
     Route: 048
     Dates: start: 20140127
  14. MULTIVITAL [Concomitant]
     Route: 048
     Dates: start: 20140127

REACTIONS (7)
  - Lymphadenopathy [Unknown]
  - Cellulitis [Unknown]
  - Peripheral swelling [Not Recovered/Not Resolved]
  - Oedema peripheral [Unknown]
  - Impaired work ability [Unknown]
  - Abasia [Unknown]
  - Pain in extremity [Not Recovered/Not Resolved]

NARRATIVE: CASE EVENT DATE: 201404
